FAERS Safety Report 9681131 (Version 1)
Quarter: 2013Q4

REPORT INFORMATION
  Report Type: Spontaneous
  Country: US (occurrence: US)
  Receive Date: 20131111
  Receipt Date: 20131111
  Transmission Date: 20140711
  Serious: Yes (Other)
  Sender: FDA-Public Use
  Company Number: US-ELI_LILLY_AND_COMPANY-US201310009552

PATIENT
  Sex: Female

DRUGS (2)
  1. CYMBALTA [Suspect]
     Indication: DEPRESSION
     Dosage: 120 MG, UNKNOWN
     Route: 065
  2. CYMBALTA [Suspect]
     Indication: ANXIETY
     Dosage: 30 MG, UNKNOWN
     Route: 065

REACTIONS (9)
  - Abortion spontaneous [Unknown]
  - Exposure during pregnancy [Unknown]
  - Abdominal discomfort [Unknown]
  - Hyperhidrosis [Unknown]
  - Flatulence [Unknown]
  - Dizziness [Unknown]
  - Hyperhidrosis [Unknown]
  - Drug withdrawal syndrome [Unknown]
  - Respiratory rate increased [Unknown]
